FAERS Safety Report 10920711 (Version 1)
Quarter: 2015Q1

REPORT INFORMATION
  Report Type: Spontaneous
  Country: US (occurrence: None)
  Receive Date: 20150313
  Receipt Date: 20150313
  Transmission Date: 20150721
  Serious: Yes (Disabling, Other)
  Sender: FDA-Public Use
  Company Number: None

PATIENT
  Age: 59 Year
  Sex: Female
  Weight: 61.24 kg

DRUGS (5)
  1. MULTI VITAMINS [Concomitant]
  2. SOVALDI [Suspect]
     Active Substance: SOFOSBUVIR
     Indication: HEPATITIS C
     Dosage: YES ONCE DAILY TAKEN BY MOUTH
     Route: 048
     Dates: start: 20141202, end: 20150223
  3. PROBIOTICS [Concomitant]
     Active Substance: PROBIOTICS NOS
  4. OLYSIO [Suspect]
     Active Substance: SIMEPREVIR
     Indication: HEPATITIS C
     Dosage: YES ONCE DAILY TAKEN BY MOUTH
     Route: 048
     Dates: start: 20141202, end: 20150223
  5. CELEBREX [Concomitant]
     Active Substance: CELECOXIB

REACTIONS (2)
  - Amnesia [None]
  - Confusional state [None]

NARRATIVE: CASE EVENT DATE: 20150312
